FAERS Safety Report 9171124 (Version 1)
Quarter: 2013Q1

REPORT INFORMATION
  Report Type: Spontaneous
  Country: FR (occurrence: FR)
  Receive Date: 20130319
  Receipt Date: 20130319
  Transmission Date: 20140127
  Serious: Yes (Hospitalization, Other)
  Sender: FDA-Public Use
  Company Number: FR-PFIZER INC-2013086967

PATIENT
  Age: 62 Year
  Sex: Male

DRUGS (7)
  1. SOLU-MEDROL [Suspect]
     Indication: MULTIPLE SCLEROSIS
     Dosage: UNK
     Route: 042
     Dates: start: 20130219, end: 20130223
  2. TILDIEM [Concomitant]
     Dosage: 60MG
  3. SECTRAL [Concomitant]
     Dosage: 200MG
  4. CACIT [Concomitant]
     Dosage: UNK
  5. DEDROGYL [Concomitant]
     Dosage: UNK
  6. STILNOX [Concomitant]
     Dosage: UNK
  7. PARACETAMOL [Concomitant]
     Dosage: UNK

REACTIONS (1)
  - Acute coronary syndrome [Recovered/Resolved]
